FAERS Safety Report 13343236 (Version 2)
Quarter: 2017Q1

REPORT INFORMATION
  Report Type: Spontaneous
  Country: DE (occurrence: DE)
  Receive Date: 20170316
  Receipt Date: 20170321
  Transmission Date: 20170428
  Serious: Yes (Life-Threatening, Hospitalization, Other)
  Sender: FDA-Public Use
  Company Number: DE-DSJP-DSE-2017-108296

PATIENT

DRUGS (5)
  1. NITROFURANTOIN. [Concomitant]
     Active Substance: NITROFURANTOIN
     Indication: URINARY TRACT INFECTION
     Dosage: UNK
  2. PANTOPRAZOL [Concomitant]
     Active Substance: PANTOPRAZOLE SODIUM
     Indication: PROPHYLAXIS
     Dosage: 40 MG, QD
     Route: 048
  3. THYRONAJOD [Concomitant]
     Active Substance: LEVOTHYROXINE SODIUM\POTASSIUM IODIDE
     Indication: HYPOTHYROIDISM
     Dosage: 100 ?G, QD
     Route: 048
  4. LIXIANA [Suspect]
     Active Substance: EDOXABAN TOSILATE MONOHYDRATE
     Indication: ATRIAL FIBRILLATION
     Dosage: 60 MG, QD
     Route: 048
     Dates: start: 201612, end: 20170302
  5. RAMIPRIL. [Concomitant]
     Active Substance: RAMIPRIL
     Indication: HYPERTENSION
     Dosage: 1.25 MG, QD
     Route: 048

REACTIONS (3)
  - Gastrointestinal haemorrhage [Not Recovered/Not Resolved]
  - Haemoglobin decreased [Not Recovered/Not Resolved]
  - Hypotension [Not Recovered/Not Resolved]
